FAERS Safety Report 8870239 (Version 1)
Quarter: 2012Q4

REPORT INFORMATION
  Report Type: 
  Country: US (occurrence: US)
  Receive Date: 20121026
  Receipt Date: 20121026
  Transmission Date: 20130627
  Serious: No
  Sender: FDA-Public Use
  Company Number: US-AMGEN-USASP2012043345

PATIENT
  Age: 57 Year
  Sex: Female
  Weight: 72.56 kg

DRUGS (17)
  1. ENBREL [Suspect]
     Indication: PRODUCT USED FOR UNKNOWN INDICATION
     Dosage: 50 mg/ml, every 10 days
     Route: 058
  2. EVISTA [Concomitant]
     Dosage: 60 mg, UNK
     Route: 048
  3. HUMIRA [Concomitant]
     Dosage: 40 mg/0.8
     Route: 058
  4. DEPAKOTE [Concomitant]
     Dosage: 125 mg, UNK
     Route: 048
  5. PRAVASTATIN [Concomitant]
     Dosage: 10 mg, UNK
     Route: 048
  6. VENTOLIN                           /00139501/ [Concomitant]
     Dosage: UNK
  7. VITAMIN D /00107901/ [Concomitant]
     Dosage: 5000 unit, UNK
     Route: 048
  8. KEFLEX                             /00145501/ [Concomitant]
     Dosage: 500 mg, UNK
     Route: 048
  9. LEXAPRO [Concomitant]
     Dosage: 10 mg, UNK
     Route: 048
  10. SPIRIVA [Concomitant]
     Dosage: UNK
  11. CALCIUM [Concomitant]
     Dosage: 500 mg, UNK
     Route: 048
  12. VITAMIN B COMPLEX [Concomitant]
     Dosage: UNK
     Route: 048
  13. VITAMIN B [Concomitant]
     Dosage: 50 mg, UNK
     Route: 048
  14. DOXYCYCLINE [Concomitant]
     Dosage: 20 mg, UNK
     Route: 048
  15. BABY ASPIRIN [Concomitant]
     Dosage: 81 mg, UNK
     Route: 048
  16. METHYLPRED [Concomitant]
     Dosage: 16 mg, UNK
     Route: 048
  17. TROSPIUM [Concomitant]
     Dosage: 20 mg, UNK
     Route: 048

REACTIONS (2)
  - Cough [Unknown]
  - Upper-airway cough syndrome [Unknown]
